FAERS Safety Report 9939478 (Version 1)
Quarter: 2014Q1

REPORT INFORMATION
  Report Type: Spontaneous
  Country: US (occurrence: US)
  Receive Date: 20140303
  Receipt Date: 20140303
  Transmission Date: 20141002
  Serious: No
  Sender: FDA-Public Use
  Company Number: US-ABBVIE-13P-163-1033286-00

PATIENT
  Age: 65 Year
  Sex: Female

DRUGS (14)
  1. HUMIRA [Suspect]
     Indication: PSORIASIS
     Dates: start: 20121008
  2. WELLBUTRIN [Concomitant]
     Indication: DEPRESSION
     Dosage: 300MG DAILY
  3. LEXAPRO [Concomitant]
     Indication: DEPRESSION
     Dosage: 10MG DAILY
  4. BYSTOLIC [Concomitant]
     Indication: MYOCARDIAL INFARCTION
     Dosage: 10MG DAILY
  5. SIMVASTATIN [Concomitant]
     Indication: BLOOD CHOLESTEROL INCREASED
     Dosage: 40MG DAILY
  6. SIMVASTATIN [Concomitant]
     Indication: HYPERTENSION
  7. MULTIVITAMIN [Concomitant]
     Indication: VITAMIN SUPPLEMENTATION
  8. GARLIC [Concomitant]
     Indication: NUTRITIONAL SUPPLEMENTATION
  9. FISH OIL [Concomitant]
     Indication: NUTRITIONAL SUPPLEMENTATION
  10. RED NIACIN [Concomitant]
     Indication: NUTRITIONAL SUPPLEMENTATION
  11. OTHER VITAMINS [Concomitant]
     Indication: VITAMIN SUPPLEMENTATION
     Dosage: DAILY
  12. BABY ASPIRIN [Concomitant]
     Indication: CARDIOVASCULAR EVENT PROPHYLAXIS
     Dosage: 81MG DAILY
  13. SEROQUEL [Concomitant]
     Indication: INSOMNIA
     Dosage: AT SLEEP
  14. CLARITIN [Concomitant]
     Indication: HYPERSENSITIVITY
     Dosage: DAILY

REACTIONS (6)
  - Sleep disorder [Unknown]
  - Pruritus [Unknown]
  - Malaise [Unknown]
  - Rash [Unknown]
  - Alopecia [Unknown]
  - Circumstance or information capable of leading to medication error [Unknown]
